FAERS Safety Report 10347420 (Version 2)
Quarter: 2014Q3

REPORT INFORMATION
  Report Type: Spontaneous
  Country: US (occurrence: None)
  Receive Date: 20140725
  Receipt Date: 20140812
  Transmission Date: 20150326
  Serious: Yes (Hospitalization, Other)
  Sender: FDA-Public Use
  Company Number: 2014SUP00024

PATIENT
  Age: 40 Year
  Sex: Female
  Weight: 77.1 kg

DRUGS (3)
  1. CALCIUM [Concomitant]
     Active Substance: CALCIUM
  2. TOPAMAX [Concomitant]
     Active Substance: TOPIRAMATE
  3. OXTELLAR XR [Suspect]
     Active Substance: OXCARBAZEPINE
     Indication: NEUROPATHY PERIPHERAL
     Route: 048
     Dates: start: 20140528, end: 20140630

REACTIONS (13)
  - Lymphadenopathy [None]
  - Hypersensitivity [None]
  - Inflammation [None]
  - No therapeutic response [None]
  - Local swelling [None]
  - Off label use [None]
  - Fear [None]
  - Lymph gland infection [None]
  - Lymphoma [None]
  - Neck mass [None]
  - Clostridium difficile infection [None]
  - Hypoaesthesia [None]
  - Hypokinesia [None]

NARRATIVE: CASE EVENT DATE: 20140528
